FAERS Safety Report 19769979 (Version 2)
Quarter: 2021Q4

REPORT INFORMATION
  Report Type: Report from Study
  Country: None (occurrence: BR)
  Receive Date: 20210831
  Receipt Date: 20211001
  Transmission Date: 20220303
  Serious: Yes (Hospitalization, Disabling)
  Sender: FDA-Public Use
  Company Number: BR-ABBVIE-21K-020-4054893-00

PATIENT
  Sex: Female
  Weight: 75 kg

DRUGS (1)
  1. RINVOQ [Suspect]
     Active Substance: UPADACITINIB
     Indication: Rheumatoid arthritis
     Route: 048

REACTIONS (10)
  - Gait inability [Recovered/Resolved]
  - Urinary tract infection [Recovered/Resolved]
  - Bursitis [Recovering/Resolving]
  - Blood sodium decreased [Recovered/Resolved]
  - Blood potassium decreased [Recovered/Resolved]
  - Pain in extremity [Recovering/Resolving]
  - Rheumatoid arthritis [Recovering/Resolving]
  - Immunodeficiency [Recovering/Resolving]
  - Therapeutic product effect incomplete [Unknown]
  - Mouth ulceration [Recovered/Resolved]
